FAERS Safety Report 24061446 (Version 1)
Quarter: 2024Q3

REPORT INFORMATION
  Report Type: Spontaneous
  Country: GB (occurrence: GB)
  Receive Date: 20240708
  Receipt Date: 20240708
  Transmission Date: 20241017
  Serious: Yes (Life-Threatening, Other)
  Sender: MYLAN
  Company Number: None

PATIENT
  Age: 56 Year
  Sex: Female
  Weight: 85 kg

DRUGS (6)
  1. CLARITHROMYCIN [Suspect]
     Active Substance: CLARITHROMYCIN
     Indication: Ill-defined disorder
     Dosage: 500 MILLIGRAM, BID (TAKE ONE TABLET TWICE A DAY FOR SEVEN DAYS)
     Route: 065
     Dates: start: 20240628
  2. SOLIFENACIN [Concomitant]
     Active Substance: SOLIFENACIN
     Indication: Bladder disorder
     Dosage: 1 DOSAGE FORM, QD (TAKE ONE TABLET EACH DAY FOR BLADDER PROBLEMS)
     Route: 065
     Dates: start: 20240419
  3. DIAZEPAM [Concomitant]
     Active Substance: DIAZEPAM
     Indication: Ill-defined disorder
     Dosage: 1 DOSAGE FORM (TAKE ONE SPARINGLY - UP TO TO BE TAKEN THREE TI)
     Route: 065
     Dates: start: 20240617, end: 20240622
  4. EPIPEN [Concomitant]
     Active Substance: EPINEPHRINE
     Indication: Ill-defined disorder
     Dosage: FOR PATIENTS WEIGHING GREATER THAN 25KG. USE AS.
     Route: 065
     Dates: start: 20240702
  5. PROPRANOLOL [Concomitant]
     Active Substance: PROPRANOLOL HYDROCHLORIDE
     Indication: Ill-defined disorder
     Dosage: 1 DOSAGE FORM, Q8H (TAKE ONE 3 TIMES/DAY)
     Route: 065
     Dates: start: 20211019
  6. PAROXETINE [Concomitant]
     Active Substance: PAROXETINE
     Indication: Ill-defined disorder
     Dosage: 1 DOSAGE FORM, QD (1 DAILY)
     Route: 065
     Dates: start: 20230308

REACTIONS (3)
  - Swollen tongue [Recovering/Resolving]
  - Lip swelling [Unknown]
  - Pharyngeal swelling [Unknown]
